FAERS Safety Report 6290593-4 (Version None)
Quarter: 2009Q3

REPORT INFORMATION
  Report Type: 
  Country: None (occurrence: None)
  Receive Date: 20090730
  Receipt Date: 20090723
  Transmission Date: 20100115
  Serious: Yes (Hospitalization, Other)
  Sender: FDA-Public Use
  Company Number: US-JNJFOC-20070104789

PATIENT
  Sex: Male
  Weight: 70 kg

DRUGS (6)
  1. RISPERDAL [Suspect]
     Indication: DRUG USE FOR UNKNOWN INDICATION
  2. SEROQUEL [Suspect]
     Indication: DRUG USE FOR UNKNOWN INDICATION
  3. OLANZAPINE [Suspect]
     Indication: DRUG USE FOR UNKNOWN INDICATION
  4. RISPERDAL [Suspect]
  5. ZOLOFT [Concomitant]
  6. CLONIDINE [Concomitant]

REACTIONS (12)
  - AGGRESSION [None]
  - AGITATION [None]
  - AKATHISIA [None]
  - ANXIETY [None]
  - GYNAECOMASTIA [None]
  - HOSTILITY [None]
  - HYPERPROLACTINAEMIA [None]
  - IMPULSIVE BEHAVIOUR [None]
  - IRRITABILITY [None]
  - MASTECTOMY [None]
  - SUICIDAL IDEATION [None]
  - TYPE 1 DIABETES MELLITUS [None]
